FAERS Safety Report 9722237 (Version 2)
Quarter: 2013Q4

REPORT INFORMATION
  Report Type: Spontaneous
  Country: US (occurrence: US)
  Receive Date: 20131202
  Receipt Date: 20131204
  Transmission Date: 20140711
  Serious: Yes (Death, Other)
  Sender: FDA-Public Use
  Company Number: US-JNJFOC-20131112291

PATIENT
  Sex: 0

DRUGS (20)
  1. DOXORUBICIN HYDROCHLORIDE [Suspect]
     Indication: DIFFUSE LARGE B-CELL LYMPHOMA
     Route: 042
  2. RITUXIMAB [Suspect]
     Indication: DIFFUSE LARGE B-CELL LYMPHOMA
     Dosage: ON DAY 1
     Route: 042
  3. CYCLOPHOSPHAMIDE [Suspect]
     Indication: DIFFUSE LARGE B-CELL LYMPHOMA
     Dosage: FOR 6 DOSES ON DAYS 1-3
     Route: 042
  4. CYCLOPHOSPHAMIDE [Suspect]
     Indication: DIFFUSE LARGE B-CELL LYMPHOMA
     Dosage: ON DAY 1
     Route: 042
  5. VINCRISTINE [Suspect]
     Indication: DIFFUSE LARGE B-CELL LYMPHOMA
     Dosage: 1.4 OR MAX. 2 MG ON DAYS 5 AND 12
     Route: 042
  6. DEXAMETHASONE [Suspect]
     Indication: DIFFUSE LARGE B-CELL LYMPHOMA
     Dosage: ON DAYS 2-5
     Route: 042
  7. DEXAMETHASONE [Suspect]
     Indication: DIFFUSE LARGE B-CELL LYMPHOMA
     Dosage: ON DAYS 2-5
     Route: 048
  8. PREDNISONE [Suspect]
     Indication: DIFFUSE LARGE B-CELL LYMPHOMA
     Dosage: ON DAYS 1-5
     Route: 048
  9. CYTARABINE [Suspect]
     Indication: DIFFUSE LARGE B-CELL LYMPHOMA
     Dosage: EVERY 12H FOR 4 DOSES ON DAY 3 AND 4
     Route: 065
  10. METHOTREXATE [Suspect]
     Indication: DIFFUSE LARGE B-CELL LYMPHOMA
     Dosage: OVER 2 HOURS
     Route: 065
  11. METHOTREXATE [Suspect]
     Indication: DIFFUSE LARGE B-CELL LYMPHOMA
     Dosage: OVER 22 HOUR ON DAY 1
     Route: 065
  12. MESNA [Concomitant]
     Indication: SUPPORTIVE CARE
     Dosage: OVER 24 H ON DAYS 1-3 (CYCLES 1, 3, 5)
     Route: 042
  13. SODIUM BICARBONATE [Concomitant]
     Indication: SUPPORTIVE CARE
     Dosage: OVER 24 H ON DAYS 1-3 (CYCLES 1, 3, 5)
     Route: 048
  14. LEUCOVORIN [Concomitant]
     Indication: SUPPORTIVE CARE
     Route: 065
  15. PREDNISONE [Concomitant]
     Indication: SUPPORTIVE CARE
     Dosage: FOR 7 DAYS
  16. FILGRASTIM [Concomitant]
     Indication: INFECTION PROPHYLAXIS
     Dosage: FOR 7 DAYS
  17. CIPROFLOXACIN [Concomitant]
     Indication: INFECTION PROPHYLAXIS
     Dosage: FOR 10 DAYS
  18. FLUCONAZOLE [Concomitant]
     Indication: INFECTION PROPHYLAXIS
     Dosage: FOR 10 DAYS
     Route: 048
  19. VALACYCLOVIR [Concomitant]
     Indication: INFECTION PROPHYLAXIS
     Dosage: FOR 10 DAYS
     Route: 048
  20. PEGFILGRASTIM [Concomitant]
     Indication: INFECTION PROPHYLAXIS
     Dosage: FOR 7 DAYS
     Route: 065

REACTIONS (11)
  - Diffuse large B-cell lymphoma recurrent [Fatal]
  - Sepsis [Fatal]
  - Diffuse large B-cell lymphoma [Fatal]
  - Neoplasm malignant [Fatal]
  - Pulmonary embolism [Unknown]
  - Infection [Unknown]
  - Deep vein thrombosis [Unknown]
  - Neutropenia [Unknown]
  - Thrombocytopenia [Unknown]
  - Febrile neutropenia [Unknown]
  - Renal impairment [Unknown]
